FAERS Safety Report 8402114-8 (Version None)
Quarter: 2012Q2

REPORT INFORMATION
  Report Type: 
  Country: None (occurrence: None)
  Receive Date: 20120601
  Receipt Date: 20120530
  Transmission Date: 20120825
  Serious: Yes (Life-Threatening, Other)
  Sender: FDA-Public Use
  Company Number: PHHY2011US27494

PATIENT
  Sex: Female

DRUGS (5)
  1. GILENYA [Suspect]
     Dosage: 0.5 MG, DAILY
     Route: 048
     Dates: start: 20120119
  2. GILENYA [Suspect]
     Indication: MULTIPLE SCLEROSIS
     Dosage: 0.5 MG, QD
     Route: 048
     Dates: start: 20110317, end: 20110605
  3. ALPRAZOLAM [Concomitant]
  4. CLONAZEPAM [Concomitant]
  5. LEVOTHYROXINE SODIUM [Concomitant]

REACTIONS (28)
  - MULTIPLE SCLEROSIS [None]
  - EYE PRURITUS [None]
  - INSOMNIA [None]
  - FEELING ABNORMAL [None]
  - SWELLING [None]
  - SWELLING FACE [None]
  - DYSPNOEA [None]
  - WEIGHT INCREASED [None]
  - URTICARIA [None]
  - VISUAL IMPAIRMENT [None]
  - FATIGUE [None]
  - MALAISE [None]
  - HEADACHE [None]
  - NUCLEAR MAGNETIC RESONANCE IMAGING ABNORMAL [None]
  - NAUSEA [None]
  - EYE SWELLING [None]
  - HEART RATE DECREASED [None]
  - CONSTIPATION [None]
  - DRY EYE [None]
  - ANXIETY [None]
  - APPARENT DEATH [None]
  - MENTAL RETARDATION [None]
  - RASH MACULAR [None]
  - PALPITATIONS [None]
  - CHEST PAIN [None]
  - DYSPHEMIA [None]
  - FEELING DRUNK [None]
  - ALOPECIA [None]
